FAERS Safety Report 9160998 (Version 1)
Quarter: 2013Q1

REPORT INFORMATION
  Report Type: Spontaneous
  Country: CO (occurrence: CO)
  Receive Date: 20130313
  Receipt Date: 20130313
  Transmission Date: 20140127
  Serious: Yes (Other)
  Sender: FDA-Public Use
  Company Number: CO-PFIZER INC-2013084568

PATIENT
  Age: 66 Year
  Sex: Female

DRUGS (8)
  1. LYRICA [Suspect]
     Indication: RHEUMATOID ARTHRITIS
     Dosage: 150 MG, 3X/DAY
     Route: 048
     Dates: start: 2009
  2. LYRICA [Suspect]
     Indication: FIBROMYALGIA
  3. PLAVIX [Concomitant]
     Indication: CEREBRAL ISCHAEMIA
     Dosage: 75 MG, 1X/DAY
     Route: 048
     Dates: start: 2003
  4. BETALOC ZOK ^ASTRA^ [Concomitant]
     Indication: HYPERTENSION
     Dosage: 50 MG, 2X/DAY
     Route: 048
     Dates: start: 2008
  5. BETAHISTINE [Concomitant]
     Indication: DIZZINESS
     Dosage: 8 MG, AS NEEDED
     Route: 048
     Dates: start: 2011
  6. OMEPRAZOL [Concomitant]
     Indication: GASTRITIS
     Dosage: UNK
     Route: 048
  7. OMEPRAZOL [Concomitant]
     Indication: IRRITABLE BOWEL SYNDROME
  8. HYDROCHLOROTHIAZIDE [Concomitant]
     Indication: FLUID RETENTION
     Route: 065

REACTIONS (4)
  - Urinary tract infection [Recovering/Resolving]
  - Escherichia infection [Recovering/Resolving]
  - Vertigo [Not Recovered/Not Resolved]
  - Somnolence [Not Recovered/Not Resolved]
